FAERS Safety Report 23273156 (Version 1)
Quarter: 2023Q4

REPORT INFORMATION
  Report Type: Spontaneous
  Country: US (occurrence: None)
  Receive Date: 20231207
  Receipt Date: 20231207
  Transmission Date: 20240110
  Serious: Yes (Hospitalization)
  Sender: FDA-Public Use
  Company Number: None

PATIENT
  Sex: Female

DRUGS (4)
  1. OPSUMIT [Suspect]
     Active Substance: MACITENTAN
     Indication: Pulmonary arterial hypertension
     Dosage: FREQUENCY : DAILY;?
     Route: 048
     Dates: start: 202109
  2. lidocaine/prilocaine crm [Concomitant]
  3. ADEMPAS [Concomitant]
     Active Substance: RIOCIGUAT
  4. remodulin mdv [Concomitant]

REACTIONS (1)
  - Hospitalisation [None]
